FAERS Safety Report 5046149-4 (Version None)
Quarter: 2006Q2

REPORT INFORMATION
  Report Type: 
  Country: None (occurrence: None)
  Receive Date: 20060629
  Receipt Date: 20060613
  Transmission Date: 20061013
  Serious: Yes (Other)
  Sender: FDA-Public Use
  Company Number: SP00892

PATIENT
  Age: 70 Year
  Sex: Male

DRUGS (1)
  1. VISICOL [Suspect]
     Indication: COLONOSCOPY
     Dosage: ORAL
     Route: 048
     Dates: start: 20060601, end: 20060601

REACTIONS (2)
  - FOREIGN BODY TRAUMA [None]
  - OESOPHAGEAL OBSTRUCTION [None]
